FAERS Safety Report 5121146-9 (Version None)
Quarter: 2006Q4

REPORT INFORMATION
  Report Type: 
  Country: None (occurrence: None)
  Receive Date: 20061002
  Receipt Date: 20060919
  Transmission Date: 20070319
  Serious: Yes (Death, Life-Threatening)
  Sender: FDA-Public Use
  Company Number: HQWYE880219SEP06

PATIENT
  Age: 77 Year
  Sex: Male

DRUGS (33)
  1. PIPERACILLIN AND TAZOBACTAM [Suspect]
     Indication: PNEUMONIA ASPIRATION
     Dosage: SEE IMAGE, INTRAVENOUS DRIP
     Route: 041
     Dates: start: 20060905, end: 20060905
  2. PIPERACILLIN AND TAZOBACTAM [Suspect]
     Indication: PNEUMONIA ASPIRATION
     Dosage: SEE IMAGE, INTRAVENOUS DRIP
     Route: 041
     Dates: start: 20060906, end: 20060907
  3. DORMICUM                    (MIDAZOLAM MALEATE ) [Suspect]
     Indication: SEDATION
     Dosage: SEE IMAGE, INTRAVENOUS DRIP
     Route: 041
     Dates: start: 20060905, end: 20060905
  4. DORMICUM                    (MIDAZOLAM MALEATE ) [Suspect]
     Indication: SEDATION
     Dosage: SEE IMAGE, INTRAVENOUS DRIP
     Route: 041
     Dates: start: 20060906, end: 20060907
  5. FAMOTIDINE [Suspect]
     Indication: PROPHYLAXIS AGAINST GASTROINTESTINAL ULCER
     Dosage: 40 MG 1X PER 1AY, INTRAVENOUS DRIP
     Route: 041
     Dates: start: 20060906, end: 20060908
  6. MAGCOROL                  (MAGNESIUM CITRATE, ) [Suspect]
     Indication: ENDOSCOPY
     Dosage: 100 G 1X PER 1 DAY, ORAL
     Route: 048
     Dates: start: 20060905, end: 20060905
  7. MAGCOROL                  (MAGNESIUM CITRATE, ) [Suspect]
     Indication: PREMEDICATION
     Dosage: 100 G 1X PER 1 DAY, ORAL
     Route: 048
     Dates: start: 20060905, end: 20060905
  8. IMMUNE GLOBULIN INTRAVENOUS (HUMAN) [Concomitant]
  9. NORADRENALINE (NOREPINEPHRINE) [Concomitant]
  10. RINGER-ACETAT (CALCIUM CHLORIDE ANHYDROUS/MAGNESIUM CHLORI [Concomitant]
  11. MIRACLID           (URINASTATIN) [Concomitant]
  12. SOLU-CORTEF [Concomitant]
  13. BUMINATE                 (ALBUMIN NORMAL HUMAN SERUM) [Concomitant]
  14. SODIUM BICARBONATE [Concomitant]
  15. DOPAMINE HCL [Concomitant]
  16. DOBUTREX [Concomitant]
  17. PITRESSIN                (VASOPRESSIN INJECTION) [Concomitant]
  18. BOSMIN (EPINEPHRINE HYDROCHLORIDE) [Concomitant]
  19. ATROPINE SULFATE [Concomitant]
  20. CALCIUM CHLORIDE ANHYDROUS (CALCIUM CHLORIDE ANHYDROUS) [Concomitant]
  21. HETASTARCH (HETASTARCH) [Concomitant]
  22. POTASSIUM CHLORIDE [Concomitant]
  23. .......................... [Concomitant]
  24. HUMULIN R [Concomitant]
  25. ELASPOL (SIVELESTAT SODIUM) [Concomitant]
  26. HYDROCORTONE (HYDROCORTISONE) [Concomitant]
  27. SOLU-MEDROL [Concomitant]
  28. LEPETAN             (BUPRENORPHINE HYDROCHLORIDE) [Concomitant]
  29. ANTITHROMBIN III            (ANTITHROMBIN III) [Concomitant]
  30. CALCICOL             (CALCIUM GLUCONATE) [Concomitant]
  31. LASIX [Concomitant]
  32. PENTAZOCINE LACTATE [Concomitant]
  33. LACTATED RINGER'S [Concomitant]

REACTIONS (9)
  - ACUTE RESPIRATORY DISTRESS SYNDROME [None]
  - BLOOD PRESSURE ABNORMAL [None]
  - HAEMODIALYSIS [None]
  - MULTI-ORGAN FAILURE [None]
  - PULMONARY HAEMORRHAGE [None]
  - PURPURA [None]
  - RHABDOMYOLYSIS [None]
  - SEPTIC SHOCK [None]
  - TOXIC EPIDERMAL NECROLYSIS [None]
